FAERS Safety Report 8576585-0 (Version None)
Quarter: 2012Q3

REPORT INFORMATION
  Report Type: 
  Country: None (occurrence: None)
  Receive Date: 20120807
  Receipt Date: 20111216
  Transmission Date: 20120928
  Serious: Yes (Death)
  Sender: FDA-Public Use
  Company Number: DE-CELGENEUS-062-21660-12061580

PATIENT
  Sex: Female
  Weight: 67 kg

DRUGS (6)
  1. ANTIEMETIC DRUGS [Concomitant]
     Route: 065
     Dates: start: 20110606, end: 20110606
  2. ABRAXANE [Suspect]
     Route: 065
     Dates: start: 20110627, end: 20110627
  3. ABRAXANE [Suspect]
     Route: 065
     Dates: start: 20110606, end: 20110606
  4. ABRAXANE [Suspect]
     Route: 065
     Dates: start: 20110718, end: 20110718
  5. ANTIEMETIC DRUGS [Concomitant]
     Route: 065
     Dates: start: 20110627, end: 20110627
  6. ANTIEMETIC DRUGS [Concomitant]
     Route: 065
     Dates: start: 20110718, end: 20110718

REACTIONS (7)
  - NEUTROPENIA [None]
  - ASTHENIA [None]
  - GENERAL PHYSICAL HEALTH DETERIORATION [None]
  - ANAEMIA [None]
  - BREAST CANCER METASTATIC [None]
  - CEREBRAL DISORDER [None]
  - LEUKOPENIA [None]
